FAERS Safety Report 7136551-9 (Version None)
Quarter: 2010Q4

REPORT INFORMATION
  Report Type: 
  Country: None (occurrence: None)
  Receive Date: 20101206
  Receipt Date: 20101130
  Transmission Date: 20110411
  Serious: Yes (Death, Hospitalization)
  Sender: FDA-Public Use
  Company Number: US-SHIRE-ALL1-2010-06255

PATIENT
  Age: 74 Year
  Sex: Female

DRUGS (1)
  1. FOSRENOL [Suspect]
     Indication: HYPERPHOSPHATAEMIA
     Dosage: 1000 MG, 3X/DAY:TID, WITH MEALS
     Route: 048
     Dates: start: 20100120, end: 20101102

REACTIONS (2)
  - AMYLOIDOSIS [None]
  - CARDIAC FAILURE CONGESTIVE [None]
